FAERS Safety Report 6717892-3 (Version None)
Quarter: 2010Q2

REPORT INFORMATION
  Report Type: 
  Country: None (occurrence: None)
  Receive Date: 20100505
  Receipt Date: 20100416
  Transmission Date: 20101027
  Serious: Yes (Other)
  Sender: FDA-Public Use
  Company Number: JPI-P-010388

PATIENT
  Age: 42 Year
  Sex: Female

DRUGS (10)
  1. XYREM [Suspect]
     Indication: SLEEP DISORDER
     Dosage: ORAL; (9 GM), ORAL
     Route: 048
     Dates: end: 20100402
  2. XYREM [Suspect]
     Indication: SOMNOLENCE
     Dosage: ORAL; (9 GM), ORAL
     Route: 048
     Dates: end: 20100402
  3. XYREM [Suspect]
     Indication: SLEEP DISORDER
     Dosage: ORAL; (9 GM), ORAL
     Route: 048
     Dates: start: 20080601
  4. XYREM [Suspect]
     Indication: SOMNOLENCE
     Dosage: ORAL; (9 GM), ORAL
     Route: 048
     Dates: start: 20080601
  5. BUPROPION HYDROCHLORIDE [Concomitant]
  6. LUBIPROSTONE [Concomitant]
  7. ZONISAMIDE [Concomitant]
  8. CLONAZEPAM [Concomitant]
  9. OXYCODONE [Concomitant]
  10. OXYCODONE AND ACETAMINOPHEN [Concomitant]

REACTIONS (8)
  - AMNESIA [None]
  - CONFUSIONAL STATE [None]
  - DISORIENTATION [None]
  - DIZZINESS [None]
  - FEELING ABNORMAL [None]
  - INCORRECT DOSE ADMINISTERED [None]
  - POSTURE ABNORMAL [None]
  - UNRESPONSIVE TO STIMULI [None]
